FAERS Safety Report 18456164 (Version 2)
Quarter: 2020Q4

REPORT INFORMATION
  Report Type: Spontaneous
  Country: IE (occurrence: IE)
  Receive Date: 20201103
  Receipt Date: 20201124
  Transmission Date: 20210114
  Serious: Yes (Hospitalization, Other)
  Sender: FDA-Public Use
  Company Number: IE-EMD SERONO-E2B_90080976

PATIENT
  Age: 35 Year
  Sex: Female

DRUGS (6)
  1. GONAL-F [Suspect]
     Active Substance: FOLLITROPIN
     Indication: IN VITRO FERTILISATION
     Dosage: SHORT CYCLE PROTOCOL
     Route: 058
     Dates: start: 20200830, end: 20200908
  2. CETROTIDE [Suspect]
     Active Substance: CETRORELIX ACETATE
     Indication: IN VITRO FERTILISATION
     Dosage: SHORT CYCLE PROTOCOL
     Route: 058
     Dates: start: 20200902, end: 20200909
  3. CYCLOGEST [Concomitant]
     Active Substance: PROGESTERONE
     Indication: PRODUCT USED FOR UNKNOWN INDICATION
     Dosage: UNTIL 8 WEEKS OF PREGNANCY
     Route: 067
  4. HCG [Suspect]
     Active Substance: GONADOTROPHIN, CHORIONIC
     Indication: IN VITRO FERTILISATION
     Dosage: SHORT CYCLE PROTOCOL ONCE OFF AS A TRIGGER
     Route: 058
     Dates: start: 20200909
  5. MEDRONE                            /00049601/ [Concomitant]
     Indication: PRODUCT USED FOR UNKNOWN INDICATION
     Dosage: FOR 4 DAYS FROM EGG COLLECTION DAY
     Route: 048
     Dates: start: 20200911
  6. TETRACYCLINE [Concomitant]
     Active Substance: TETRACYCLINE
     Indication: PRODUCT USED FOR UNKNOWN INDICATION
     Route: 048

REACTIONS (5)
  - Anxiety [Recovered/Resolved]
  - Abdominal distension [Recovered/Resolved]
  - Ascites [Recovered/Resolved]
  - Ovarian hyperstimulation syndrome [Recovered/Resolved]
  - Discomfort [Recovered/Resolved]

NARRATIVE: CASE EVENT DATE: 20200921
